FAERS Safety Report 14227949 (Version 1)
Quarter: 2017Q4

REPORT INFORMATION
  Report Type: Spontaneous
  Country: AU (occurrence: AU)
  Receive Date: 20171127
  Receipt Date: 20171127
  Transmission Date: 20180321
  Serious: Yes (Hospitalization)
  Sender: FDA-Public Use
  Company Number: AU-PFIZER INC-2017501613

PATIENT
  Age: 42 Year
  Sex: Male
  Weight: 128 kg

DRUGS (8)
  1. KETAMINE HCL [Suspect]
     Active Substance: KETAMINE HYDROCHLORIDE
     Indication: COMPLEX REGIONAL PAIN SYNDROME
     Dosage: 2 DF, UNK (SUBANESTHETIC INFUSION)
  2. KETAMINE HCL [Suspect]
     Active Substance: KETAMINE HYDROCHLORIDE
     Dosage: UNK (8 MG/H ON DAY 0)
  3. KETAMINE HCL [Suspect]
     Active Substance: KETAMINE HYDROCHLORIDE
     Dosage: UNK (INCREASED TO 24 MG/H ON DAY 1)
  4. PANTOPRAZOLE [Concomitant]
     Active Substance: PANTOPRAZOLE
     Dosage: UNK, AS NEEDED
  5. KETAMINE HCL [Suspect]
     Active Substance: KETAMINE HYDROCHLORIDE
     Dosage: UNK (INCREASED TO 16 MG/H ON DAY 1)
  6. KETAMINE HCL [Suspect]
     Active Substance: KETAMINE HYDROCHLORIDE
     Dosage: 1.17 G, UNK (HOUR 70 WITH A CUMULATIVE DOSE)
  7. DULOXETINE. [Concomitant]
     Active Substance: DULOXETINE
     Dosage: UNK, AS NEEDED
  8. TAPENTADOL [Concomitant]
     Active Substance: TAPENTADOL
     Dosage: 50 MG, AS NEEDED (IMMEDIATE RELEASE)

REACTIONS (3)
  - Biliary dilatation [Recovering/Resolving]
  - Jaundice [Recovering/Resolving]
  - Cholangitis [Recovering/Resolving]
